FAERS Safety Report 18629288 (Version 2)
Quarter: 2021Q1

REPORT INFORMATION
  Report Type: Spontaneous
  Country: US (occurrence: US)
  Receive Date: 20201217
  Receipt Date: 20210203
  Transmission Date: 20210419
  Serious: Yes (Other)
  Sender: FDA-Public Use
  Company Number: US-BAYER-2020-271715

PATIENT
  Age: 45 Year
  Sex: Female

DRUGS (12)
  1. OMEPRAZOLE. [Concomitant]
     Active Substance: OMEPRAZOLE
  2. AMITRIPTYLINE PAMOATE [Concomitant]
     Active Substance: AMITRIPTYLINE PAMOATE
  3. TRAZODONE [Concomitant]
     Active Substance: TRAZODONE HYDROCHLORIDE
  4. MIRENA [Suspect]
     Active Substance: LEVONORGESTREL
     Indication: MENORRHAGIA
     Dosage: 20 ?G PER DAY, CONTINUOUSLY
     Route: 015
     Dates: start: 2014, end: 2019
  5. HYDROXYZINE [Concomitant]
     Active Substance: HYDROXYZINE HYDROCHLORIDE
  6. AMLODIPIN BESILAT 1 A PHARMA [Concomitant]
  7. BENZOTROPINE [Concomitant]
     Active Substance: BENZTROPINE
  8. HALDOL [Concomitant]
     Active Substance: HALOPERIDOL
  9. ATORVASTIN [Concomitant]
     Active Substance: ATORVASTATIN
  10. HALOPERIDOL. [Concomitant]
     Active Substance: HALOPERIDOL
  11. LITHIUM. [Concomitant]
     Active Substance: LITHIUM
  12. MIRENA [Suspect]
     Active Substance: LEVONORGESTREL
     Indication: UTERINE LEIOMYOMA
     Dosage: 20 ?G PER DAY, CONTINUOUSLY
     Route: 015
     Dates: start: 20210116

REACTIONS (4)
  - Menorrhagia [None]
  - Device expulsion [None]
  - Intentional medical device removal by patient [None]
  - Post procedural haemorrhage [Not Recovered/Not Resolved]

NARRATIVE: CASE EVENT DATE: 2019
